FAERS Safety Report 24554588 (Version 2)
Quarter: 2025Q1

REPORT INFORMATION
  Report Type: Report from Study
  Country: ES (occurrence: ES)
  Receive Date: 20241028
  Receipt Date: 20250203
  Transmission Date: 20250409
  Serious: Yes (Death, Other)
  Sender: ABBVIE
  Company Number: ES-JNJFOC-20241063387

PATIENT

DRUGS (1)
  1. IMBRUVICA [Interacting]
     Active Substance: IBRUTINIB
     Indication: Chronic lymphocytic leukaemia
     Route: 048

REACTIONS (17)
  - Chronic lymphocytic leukaemia [Fatal]
  - Rash [Unknown]
  - Atrial fibrillation [Unknown]
  - Infection [Fatal]
  - Hypertension [Unknown]
  - Thrombocytopenia [Unknown]
  - Arthralgia [Unknown]
  - Drug interaction [Unknown]
  - Epistaxis [Unknown]
  - Haemorrhage [Unknown]
  - Adverse event [Fatal]
  - Contusion [Unknown]
  - Anaemia [Unknown]
  - Diarrhoea [Unknown]
  - Neutropenia [Unknown]
  - Haematoma [Unknown]
  - Asthenia [Unknown]
